FAERS Safety Report 12320125 (Version 1)
Quarter: 2016Q2

REPORT INFORMATION
  Report Type: Spontaneous
  Country: US (occurrence: US)
  Receive Date: 20160430
  Receipt Date: 20160430
  Transmission Date: 20160815
  Serious: Yes (Other)
  Sender: FDA-Public Use
  Company Number: PHEH2016US010167

PATIENT
  Sex: Male

DRUGS (1)
  1. AFINITOR DISPERZ [Suspect]
     Active Substance: EVEROLIMUS
     Indication: ASTROCYTOMA, LOW GRADE
     Dosage: UNK, QD
     Route: 048

REACTIONS (1)
  - Haemophilus infection [Recovered/Resolved]

NARRATIVE: CASE EVENT DATE: 20150322
